FAERS Safety Report 11512438 (Version 1)
Quarter: 2015Q3

REPORT INFORMATION
  Report Type: Spontaneous
  Country: US (occurrence: None)
  Receive Date: 20150915
  Receipt Date: 20150915
  Transmission Date: 20151125
  Serious: Yes (Death, Hospitalization)
  Sender: FDA-Public Use
  Company Number: None

PATIENT
  Age: 23 Year
  Sex: Male
  Weight: 180.99 kg

DRUGS (6)
  1. LITHIUM. [Concomitant]
     Active Substance: LITHIUM
  2. PHYTOZON HERBAL SUPPLEMENTS [Concomitant]
  3. SEROQUEL [Concomitant]
     Active Substance: QUETIAPINE FUMARATE
  4. TAMIFLU [Suspect]
     Active Substance: OSELTAMIVIR PHOSPHATE
     Indication: ANTIVIRAL PROPHYLAXIS
     Dosage: 1 PILL
     Route: 048
     Dates: start: 20141226, end: 20141231
  5. ATENOLOL. [Concomitant]
     Active Substance: ATENOLOL
  6. PSYCHOTIC MEDS [Concomitant]

REACTIONS (9)
  - Confusional state [None]
  - Intentional self-injury [None]
  - Delusion [None]
  - Abnormal behaviour [None]
  - Social avoidant behaviour [None]
  - Immobile [None]
  - Aggression [None]
  - Delirium [None]
  - Pulmonary embolism [None]

NARRATIVE: CASE EVENT DATE: 20150102
